FAERS Safety Report 12818523 (Version 5)
Quarter: 2016Q4

REPORT INFORMATION
  Report Type: Spontaneous
  Country: US (occurrence: US)
  Receive Date: 20161005
  Receipt Date: 20161102
  Transmission Date: 20170207
  Serious: Yes (Death)
  Sender: FDA-Public Use
  Company Number: US-LUNDBECK-DKLU2020347

PATIENT
  Age: 76 Year
  Sex: Male

DRUGS (2)
  1. NORTHERA [Suspect]
     Active Substance: DROXIDOPA
     Indication: PARKINSON^S DISEASE
     Route: 048
     Dates: start: 20141201
  2. NORTHERA [Suspect]
     Active Substance: DROXIDOPA
     Indication: ORTHOSTATIC HYPOTENSION
     Route: 048
     Dates: start: 20141021

REACTIONS (6)
  - Fall [Unknown]
  - Musculoskeletal stiffness [Unknown]
  - Dizziness [Unknown]
  - Freezing phenomenon [Unknown]
  - Muscular weakness [Unknown]
  - Death [Fatal]

NARRATIVE: CASE EVENT DATE: 20160509
